FAERS Safety Report 19460951 (Version 1)
Quarter: 2021Q2

REPORT INFORMATION
  Report Type: Other
  Country: JP (occurrence: JP)
  Receive Date: 20210625
  Receipt Date: 20210625
  Transmission Date: 20210717
  Serious: Yes (Other)
  Sender: FDA-Public Use
  Company Number: JP-ROCHE-2813152

PATIENT
  Age: 71 Year
  Sex: Female
  Weight: 57.1 kg

DRUGS (4)
  1. CARBOPLATIN. [Concomitant]
     Active Substance: CARBOPLATIN
     Indication: LUNG ADENOCARCINOMA
     Dosage: DOSAGE: 322 (UNIT UNCERTAINTY) AND DOSE INTERVAL UNCERTAINTY
     Route: 041
     Dates: start: 20210127, end: 20210217
  2. ATEZOLIZUMAB. [Suspect]
     Active Substance: ATEZOLIZUMAB
     Indication: LUNG ADENOCARCINOMA
     Dosage: 1200 (UNIT UNCERTAINTY) AND DOSE INTERVAL UNCERTAINTY
     Route: 041
     Dates: start: 20210127, end: 20210217
  3. PACLITAXEL ALBUMIN [Concomitant]
     Active Substance: PACLITAXEL
     Dosage: DOSAGE: 100 (UNIT UNCERTAINTY)
     Route: 041
     Dates: start: 20210217, end: 20210224
  4. PACLITAXEL ALBUMIN [Concomitant]
     Active Substance: PACLITAXEL
     Indication: LUNG ADENOCARCINOMA
     Dosage: DOSAGE: 130 (UNIT UNCERTAINTY)
     Route: 041
     Dates: start: 20210127, end: 20210203

REACTIONS (3)
  - Metastases to meninges [Unknown]
  - Neutrophil count decreased [Recovered/Resolved]
  - White blood cell count decreased [Recovered/Resolved]

NARRATIVE: CASE EVENT DATE: 20210205
